FAERS Safety Report 17345622 (Version 1)
Quarter: 2020Q1

REPORT INFORMATION
  Report Type: Spontaneous
  Country: CA (occurrence: CA)
  Receive Date: 20200129
  Receipt Date: 20200129
  Transmission Date: 20200409
  Serious: Yes (Other)
  Sender: FDA-Public Use
  Company Number: CA-TEVA-2020-CA-1176363

PATIENT
  Age: 56 Year
  Sex: Male

DRUGS (10)
  1. METFORMIN [Suspect]
     Active Substance: METFORMIN HYDROCHLORIDE
     Indication: PRODUCT USED FOR UNKNOWN INDICATION
     Dosage: 1000 MILLIGRAM DAILY;
     Route: 065
  2. AMIODARONE [Concomitant]
     Active Substance: AMIODARONE
     Route: 048
  3. LINAGLIPTIN [Concomitant]
     Active Substance: LINAGLIPTIN
     Route: 048
  4. ASPIRIN[ACETYLSALICYLIC ACID] [Concomitant]
     Route: 048
  5. SUCABITRIL VALSARTAN SODIUM HYDRATE [Concomitant]
     Active Substance: SACUBITRIL\VALSARTAN
     Route: 048
  6. OTEZLA [Concomitant]
     Active Substance: APREMILAST
     Route: 065
  7. ROSUVASTATIN. [Concomitant]
     Active Substance: ROSUVASTATIN
     Route: 048
  8. METHOTREXATE. [Suspect]
     Active Substance: METHOTREXATE
     Indication: PRODUCT USED FOR UNKNOWN INDICATION
     Route: 065
  9. METOPROLOL. [Suspect]
     Active Substance: METOPROLOL
     Indication: PRODUCT USED FOR UNKNOWN INDICATION
     Route: 065
  10. COSENTYX [Concomitant]
     Active Substance: SECUKINUMAB
     Indication: PSORIASIS
     Route: 058

REACTIONS (2)
  - Tuberculosis [Unknown]
  - Blood pressure decreased [Unknown]
